FAERS Safety Report 9240806 (Version 1)
Quarter: 2013Q1

REPORT INFORMATION
  Report Type: Spontaneous
  Country: US (occurrence: None)
  Receive Date: 20121120
  Receipt Date: 20121120
  Transmission Date: 20140127
  Serious: No
  Sender: FDA-Public Use
  Company Number: 1000039638

PATIENT
  Age: 75 Year
  Sex: Female

DRUGS (5)
  1. VIIBRYD [Suspect]
     Indication: DEPRESSION
     Route: 048
     Dates: start: 20121018
  2. TRAZODONE (TRAZODONE) (TRAZODONE) [Concomitant]
  3. BABY ASPIRIN (ACETYLSALICYCLIC ACID) (ACETYLSALICYLIC ACID) [Concomitant]
  4. XANAX (ALPRAZOLAM) (ALPRAZOLAM) [Concomitant]
  5. VICODIN (VICODIN) (VICODIN) [Concomitant]

REACTIONS (1)
  - Tremor [None]
